FAERS Safety Report 9220139 (Version 1)
Quarter: 2013Q2

REPORT INFORMATION
  Report Type: Spontaneous
  Country: US (occurrence: US)
  Receive Date: 20130408
  Receipt Date: 20130408
  Transmission Date: 20140414
  Serious: Yes (Other)
  Sender: FDA-Public Use
  Company Number: US-RB-052042-13

PATIENT
  Age: 53 Year
  Sex: Female

DRUGS (1)
  1. MUCINEX [Suspect]
     Indication: SINUS HEADACHE
     Dosage: PATIENT TOOK PRODUCT FOR APPROXIMATELY 7 YEARS TILL 25-MAR-2013.
     Route: 048

REACTIONS (4)
  - Drug dependence [Not Recovered/Not Resolved]
  - Off label use [Not Recovered/Not Resolved]
  - Incorrect drug administration duration [Not Recovered/Not Resolved]
  - No adverse event [Unknown]
